FAERS Safety Report 15454562 (Version 1)
Quarter: 2018Q4

REPORT INFORMATION
  Report Type: Spontaneous
  Country: US (occurrence: US)
  Receive Date: 20181002
  Receipt Date: 20181002
  Transmission Date: 20190204
  Serious: No
  Sender: FDA-Public Use
  Company Number: US-PFIZER INC-2018394569

PATIENT
  Age: 64 Year
  Sex: Female
  Weight: 91 kg

DRUGS (2)
  1. LYRICA CR [Suspect]
     Active Substance: PREGABALIN
     Dosage: 75 MG, 3X/DAY
     Route: 048
  2. LYRICA CR [Suspect]
     Active Substance: PREGABALIN
     Indication: PHANTOM PAIN
     Dosage: 75 MG, 2X/DAY

REACTIONS (1)
  - Drug ineffective for unapproved indication [Unknown]
